FAERS Safety Report 4879913-2 (Version None)
Quarter: 2006Q1

REPORT INFORMATION
  Report Type: 
  Country: None (occurrence: None)
  Receive Date: 20060113
  Receipt Date: 20051207
  Transmission Date: 20060701
  Serious: Yes (Other)
  Sender: FDA-Public Use
  Company Number: US-MERCK-0512USA00947

PATIENT
  Age: 50 Year
  Sex: Female
  Weight: 48 kg

DRUGS (10)
  1. VIOXX [Suspect]
     Indication: NEURALGIA
     Route: 048
     Dates: start: 20000501, end: 20040901
  2. VIOXX [Suspect]
     Indication: ARTHRALGIA
     Route: 048
     Dates: start: 20000501, end: 20040901
  3. VIOXX [Suspect]
     Route: 048
     Dates: start: 20000501, end: 20040901
  4. VIOXX [Suspect]
     Route: 048
     Dates: start: 20000501, end: 20040901
  5. NEURONTIN [Concomitant]
     Route: 065
  6. ASPIRIN [Concomitant]
     Route: 065
  7. [THERAPY UNSPECIFIED] [Concomitant]
     Route: 065
  8. VITAMINS (UNSPECIFIED) [Concomitant]
     Route: 065
  9. NASALCROM [Concomitant]
     Route: 065
  10. PROVIGIL [Concomitant]
     Route: 065

REACTIONS (4)
  - BALANCE DISORDER [None]
  - CEREBROVASCULAR ACCIDENT [None]
  - CONDITION AGGRAVATED [None]
  - EYE DISORDER [None]
